FAERS Safety Report 10635857 (Version 1)
Quarter: 2014Q4

REPORT INFORMATION
  Report Type: Spontaneous
  Country: US (occurrence: US)
  Receive Date: 20141205
  Receipt Date: 20141205
  Transmission Date: 20150529
  Serious: Yes (Life-Threatening, Hospitalization)
  Sender: FDA-Public Use
  Company Number: PHHY2014US155791

PATIENT
  Age: 10 Year
  Sex: Female

DRUGS (1)
  1. AMOXICILLIN. [Suspect]
     Active Substance: AMOXICILLIN
     Indication: PHARYNGITIS
     Route: 065

REACTIONS (26)
  - Skin erosion [Recovered/Resolved]
  - Blister [Recovered/Resolved]
  - Transaminases increased [Not Recovered/Not Resolved]
  - Pulmonary air leakage [Recovered/Resolved]
  - Rales [Recovered/Resolved]
  - Pneumomediastinum [Recovered/Resolved]
  - Pneumothorax [Recovered/Resolved]
  - Subcutaneous emphysema [Recovered/Resolved]
  - Gamma-glutamyltransferase increased [Recovered/Resolved]
  - Punctate keratitis [Not Recovered/Not Resolved]
  - Eye irritation [Recovered/Resolved]
  - Rash [Recovered/Resolved]
  - Lung infiltration [Recovered/Resolved]
  - Pain of skin [Recovered/Resolved]
  - Oropharyngeal pain [Recovered/Resolved]
  - Body temperature increased [Recovered/Resolved]
  - Macule [Recovered/Resolved]
  - Dermatitis [Recovered/Resolved]
  - Alanine aminotransferase increased [Recovered/Resolved]
  - Skin haemorrhage [Recovered/Resolved]
  - Erythema [Recovered/Resolved]
  - Aspartate aminotransferase increased [Recovered/Resolved]
  - Breath sounds abnormal [Recovered/Resolved]
  - Conjunctival hyperaemia [Recovered/Resolved]
  - Toxic epidermal necrolysis [Recovered/Resolved]
  - Skin exfoliation [Recovered/Resolved]
